FAERS Safety Report 4466301-6 (Version None)
Quarter: 2004Q3

REPORT INFORMATION
  Report Type: 
  Country: None (occurrence: None)
  Receive Date: 20040930
  Receipt Date: 20040921
  Transmission Date: 20050211
  Serious: Yes (Other)
  Sender: FDA-Public Use
  Company Number: 208976

PATIENT
  Age: 12 Year
  Sex: Female
  Weight: 60.4 kg

DRUGS (10)
  1. XOLAIR [Suspect]
     Indication: ASTHMA
     Dosage: 375 MG, Q2W, SUBCUTANEOUS
     Route: 058
     Dates: start: 20040713
  2. PROTONIX [Concomitant]
  3. CLARITIN [Concomitant]
  4. SINGULAIR [Concomitant]
  5. PREDNISONE [Concomitant]
  6. ALBUTEROL (ALBUTEROL SULFATE, ALBUTEROL) [Concomitant]
  7. ATROVENT [Concomitant]
  8. FORADIL [Concomitant]
  9. FLOVENT [Concomitant]
  10. NASONEX NASAL SPRAY (MOMETASNONE FUROATE) [Concomitant]

REACTIONS (2)
  - CONDITION AGGRAVATED [None]
  - ECZEMA [None]
